FAERS Safety Report 7958973-6 (Version None)
Quarter: 2011Q4

REPORT INFORMATION
  Report Type: 
  Country: None (occurrence: None)
  Receive Date: 20111206
  Receipt Date: 20111124
  Transmission Date: 20120403
  Serious: Yes (Other)
  Sender: FDA-Public Use
  Company Number: FR-SANOFI-AVENTIS-2011SA077394

PATIENT

DRUGS (49)
  1. FLUOXETINE [Suspect]
     Route: 065
  2. RANITIDINE [Suspect]
     Route: 065
  3. OFLOXACIN [Suspect]
     Route: 065
  4. ACETAMINOPHEN [Suspect]
     Route: 065
  5. ALL OTHER THERAPEUTIC PRODUCTS [Suspect]
     Route: 065
  6. SPIRAMYCIN [Suspect]
     Route: 065
  7. RIBAVIRIN [Suspect]
     Route: 065
  8. CARBAMAZEPINE [Suspect]
     Route: 065
  9. FLUINDIONE [Suspect]
     Route: 065
  10. METHYLPHENIDATE [Suspect]
     Route: 065
  11. AMOXICILLIN [Suspect]
     Route: 065
  12. NORFLOXACIN [Suspect]
     Route: 065
  13. PIROXICAM [Suspect]
     Route: 065
  14. TIAPROFENIC ACID [Suspect]
     Route: 065
  15. HEPARIN SODIUM [Suspect]
     Route: 065
  16. OXALIPLATIN [Suspect]
     Route: 065
  17. VANCOMYCIN [Suspect]
     Route: 065
  18. RIMONABANT [Suspect]
     Route: 065
  19. GRANISETRON [Suspect]
     Route: 065
  20. PAROXETINE HCL [Suspect]
     Route: 065
  21. AMANTADINE HCL [Suspect]
     Route: 065
  22. ABCIXIMAB [Suspect]
     Route: 065
  23. SMECTITE [Suspect]
     Route: 065
  24. ALL OTHER THERAPEUTIC PRODUCTS [Suspect]
     Route: 065
  25. TRAMADOL HYDROCHLORIDE [Suspect]
     Route: 065
  26. MELOXICAM [Suspect]
     Route: 065
  27. PIPERACILLIN [Suspect]
     Route: 065
  28. DICLOFENAC SODIUM [Suspect]
     Route: 065
  29. AMIODARONE HYDROCHLORIDE [Suspect]
     Route: 065
  30. FLUOROURACIL [Suspect]
     Route: 065
  31. PERINDOPRIL [Suspect]
     Route: 065
  32. BEVACIZUMAB [Suspect]
     Route: 065
  33. ENOXAPARIN SODIUM [Suspect]
     Route: 065
  34. IBUPROFEN [Suspect]
     Route: 065
  35. SULFAMETHOXAZOLE AND TRIMETHOPRIM [Suspect]
     Route: 065
  36. INTERFERON ALFA [Suspect]
     Route: 065
  37. ALISKIREN [Suspect]
     Route: 065
  38. HYDROXYZINE [Suspect]
     Route: 065
  39. OMEPRAZOLE [Suspect]
     Route: 065
  40. DOCETAXEL [Suspect]
     Route: 065
  41. CHLOROQUINE PHOSPHATE [Suspect]
     Route: 065
  42. APREPITANT [Suspect]
     Route: 065
  43. DEXTROMETHORPHAN HYDROBROMIDE [Suspect]
     Route: 065
  44. EZETIMIBE [Suspect]
     Route: 065
  45. ATORVASTATIN [Suspect]
     Route: 065
  46. CLONAZEPAM [Suspect]
     Route: 065
  47. OTHER DIAGNOSTIC AGENTS [Suspect]
     Route: 065
  48. OMALIZUMAB [Suspect]
     Route: 065
  49. INTERFERON [Suspect]
     Route: 065

REACTIONS (6)
  - AUTOIMMUNE THROMBOCYTOPENIA [None]
  - EPISTAXIS [None]
  - SKIN HAEMORRHAGE [None]
  - GASTROINTESTINAL HAEMORRHAGE [None]
  - MOUTH HAEMORRHAGE [None]
  - MENORRHAGIA [None]
